FAERS Safety Report 24618156 (Version 1)
Quarter: 2024Q4

REPORT INFORMATION
  Report Type: Spontaneous
  Country: TW (occurrence: TW)
  Receive Date: 20241114
  Receipt Date: 20241114
  Transmission Date: 20250115
  Serious: Yes (Other)
  Sender: JOHNSON AND JOHNSON
  Company Number: TW-JNJFOC-20241126114

PATIENT
  Age: 50 Year
  Sex: Female

DRUGS (5)
  1. TECVAYLI [Suspect]
     Active Substance: TECLISTAMAB-CQYV
     Indication: Plasma cell myeloma recurrent
     Dosage: D1
     Route: 065
  2. TECVAYLI [Suspect]
     Active Substance: TECLISTAMAB-CQYV
     Dosage: D7
     Route: 065
  3. TECVAYLI [Suspect]
     Active Substance: TECLISTAMAB-CQYV
     Dosage: D12
     Route: 065
  4. TOCILIZUMAB [Concomitant]
     Active Substance: TOCILIZUMAB
     Dosage: D5 ONCE
     Route: 065
  5. DEXAMETHASONE [Concomitant]
     Active Substance: DEXAMETHASONE
     Dosage: DAY 14
     Route: 065

REACTIONS (9)
  - Urinary retention [Unknown]
  - Myelitis [Unknown]
  - Myelopathy [Unknown]
  - Cytokine release syndrome [Unknown]
  - Muscular weakness [Unknown]
  - Hypoaesthesia oral [Unknown]
  - Abdominal distension [Unknown]
  - Abdominal pain [Unknown]
  - Pyrexia [Recovered/Resolved]
